FAERS Safety Report 9779256 (Version 1)
Quarter: 2013Q4

REPORT INFORMATION
  Report Type: Spontaneous
  Country: US (occurrence: US)
  Receive Date: 20131223
  Receipt Date: 20131223
  Transmission Date: 20140711
  Serious: No
  Sender: FDA-Public Use
  Company Number: US-PFIZER INC-2013364947

PATIENT
  Sex: Male

DRUGS (4)
  1. ZOLOFT [Suspect]
     Indication: CLAUSTROPHOBIA
     Dosage: 50 MG, UNK
  2. ZOLOFT [Suspect]
     Dosage: UNK
  3. ZOLOFT [Suspect]
     Dosage: 100 MG, UNK
     Dates: start: 201312, end: 201312
  4. ZOLOFT [Suspect]
     Dosage: 150 MG, UNK
     Dates: start: 20131218

REACTIONS (4)
  - Anxiety [Unknown]
  - Obsessive-compulsive disorder [Unknown]
  - Insomnia [Unknown]
  - Off label use [Unknown]
